FAERS Safety Report 9041484 (Version 1)
Quarter: 2013Q1

REPORT INFORMATION
  Report Type: Report from Study
  Country: US (occurrence: US)
  Receive Date: 20130129
  Receipt Date: 20130129
  Transmission Date: 20140127
  Serious: No
  Sender: FDA-Public Use
  Company Number: US-ABBOTT-12P-163-0903367-00

PATIENT
  Age: 41 Year
  Sex: Female

DRUGS (4)
  1. HUMIRA 40 MG/0.8 ML PEN [Suspect]
     Indication: PSORIASIS
     Dosage: DAY 1: LOADING DOSE 80 MG
     Dates: start: 201110, end: 201110
  2. HUMIRA 40 MG/0.8 ML PEN [Suspect]
     Dosage: DAY 8: 40 MG
  3. HUMIRA 40 MG/0.8 ML PEN [Suspect]
     Dosage: DAY 22: 40 MG
     Dates: end: 201111
  4. UNKNOWN PILL [Concomitant]
     Indication: PRODUCT USED FOR UNKNOWN INDICATION
     Dosage: EVERY FRI, SAT AND SUN FOR 1 MONTH

REACTIONS (2)
  - Drug ineffective [Not Recovered/Not Resolved]
  - Psoriasis [Not Recovered/Not Resolved]
